FAERS Safety Report 7326459-8 (Version None)
Quarter: 2011Q1

REPORT INFORMATION
  Report Type: 
  Country: None (occurrence: None)
  Receive Date: 20110223
  Receipt Date: 20110210
  Transmission Date: 20110831
  Serious: Yes (Hospitalization)
  Sender: FDA-Public Use
  Company Number: TPA2011A00603

PATIENT
  Age: 52 Year
  Sex: Female
  Weight: 73.9363 kg

DRUGS (11)
  1. LITHIUM (LITHIUM) [Concomitant]
  2. CLONIDINE [Concomitant]
  3. LISINOPRIL [Concomitant]
  4. SIMVASTATIN [Concomitant]
  5. GLIPIZIDE [Concomitant]
  6. CLONAZEPAM [Concomitant]
  7. GEMFIBROZIL (GMEFIBROZIL) [Concomitant]
  8. RISPERIDONE [Concomitant]
  9. ACTOS [Suspect]
     Indication: DIABETES MELLITUS
     Dosage: 30 MG, 1 IN 1 D, PER ORAL
     Route: 048
     Dates: start: 20040211
  10. METFORMIN HCL [Concomitant]
  11. PROZAC [Concomitant]

REACTIONS (1)
  - CEREBROVASCULAR ACCIDENT [None]
